FAERS Safety Report 21499628 (Version 1)
Quarter: 2022Q4

REPORT INFORMATION
  Report Type: Spontaneous
  Country: US (occurrence: None)
  Receive Date: 20221024
  Receipt Date: 20221024
  Transmission Date: 20230113
  Serious: Yes (Other)
  Sender: FDA-Public Use
  Company Number: None

PATIENT
  Age: 52 Year
  Sex: Male

DRUGS (4)
  1. ERAVACYCLINE [Suspect]
     Active Substance: ERAVACYCLINE
  2. AZITHROMYCIN [Concomitant]
     Active Substance: AZITHROMYCIN
  3. Imipenem-cilistatin [Concomitant]
  4. TEDIZOLID [Concomitant]
     Active Substance: TEDIZOLID

REACTIONS (2)
  - Renal transplant [None]
  - Blood fibrinogen decreased [None]
